FAERS Safety Report 18236233 (Version 1)
Quarter: 2020Q3

REPORT INFORMATION
  Report Type: Spontaneous
  Country: TW (occurrence: TW)
  Receive Date: 20200906
  Receipt Date: 20200906
  Transmission Date: 20201103
  Serious: Yes (Death)
  Sender: FDA-Public Use
  Company Number: TW-ROCHE-2671922

PATIENT
  Age: 90 Year
  Sex: Male

DRUGS (3)
  1. HYDROQUINONE. [Concomitant]
     Active Substance: HYDROQUINONE
     Route: 048
     Dates: end: 20200717
  2. MABTHERA [Suspect]
     Active Substance: RITUXIMAB
     Indication: RHEUMATOID ARTHRITIS
     Route: 042
     Dates: start: 2011, end: 20200610
  3. SALAZINE [Concomitant]
     Active Substance: SULFASALAZINE
     Route: 048
     Dates: end: 20200717

REACTIONS (1)
  - Cerebral infarction [Fatal]

NARRATIVE: CASE EVENT DATE: 20200623
